FAERS Safety Report 5954667-7 (Version None)
Quarter: 2008Q4

REPORT INFORMATION
  Report Type: 
  Country: None (occurrence: None)
  Receive Date: 20081112
  Receipt Date: 20081105
  Transmission Date: 20090506
  Serious: Yes (Hospitalization)
  Sender: FDA-Public Use
  Company Number: 2008SP017794

PATIENT
  Age: 69 Year
  Sex: Male
  Weight: 80 kg

DRUGS (10)
  1. TEMODAL [Suspect]
     Indication: GLIOBLASTOMA
     Dosage: ; PO, 190 MG; ; PO
     Route: 048
     Dates: start: 20080813, end: 20080902
  2. TEMODAL [Suspect]
     Indication: GLIOBLASTOMA
     Dosage: ; PO, 190 MG; ; PO
     Route: 048
     Dates: start: 20080218
  3. TEMODAL [Suspect]
  4. TEMODAL [Suspect]
  5. ADALAT [Concomitant]
  6. COZAAR [Concomitant]
  7. SIMVASTATIN [Concomitant]
  8. DEXAMETHASONE 0.5MG TAB [Concomitant]
  9. DEPAKENE [Concomitant]
  10. ONDANSETRON [Concomitant]

REACTIONS (1)
  - PNEUMONIA [None]
